FAERS Safety Report 4864140-5 (Version None)
Quarter: 2005Q4

REPORT INFORMATION
  Report Type: 
  Country: None (occurrence: None)
  Receive Date: 20051222
  Receipt Date: 20051216
  Transmission Date: 20060501
  Serious: Yes (Hospitalization)
  Sender: FDA-Public Use
  Company Number: S200500510

PATIENT
  Age: 69 Year
  Sex: Female

DRUGS (3)
  1. AMOXICILLIN [Suspect]
     Indication: HELICOBACTER INFECTION
     Dosage: 1500MG PER DAY
     Route: 065
     Dates: start: 20050301
  2. LANSOPRAZOLE [Concomitant]
     Indication: HELICOBACTER INFECTION
     Dosage: 60MG PER DAY
     Route: 065
     Dates: start: 20050301
  3. CLARITHROMYCIN [Concomitant]
     Indication: HELICOBACTER INFECTION
     Dosage: 400MG PER DAY
     Route: 065
     Dates: start: 20050301

REACTIONS (4)
  - APHTHOUS STOMATITIS [None]
  - CLOSTRIDIAL INFECTION [None]
  - CLOSTRIDIUM COLITIS [None]
  - DIARRHOEA [None]
